FAERS Safety Report 12423074 (Version 1)
Quarter: 2016Q2

REPORT INFORMATION
  Report Type: Spontaneous
  Country: GB (occurrence: GB)
  Receive Date: 20160601
  Receipt Date: 20160601
  Transmission Date: 20160815
  Serious: Yes (Other)
  Sender: FDA-Public Use
  Company Number: GB-AUROBINDO-AUR-APL-2016-06359

PATIENT
  Sex: Female
  Weight: 48.7 kg

DRUGS (2)
  1. RAMIPRIL CAPSULE [Suspect]
     Active Substance: RAMIPRIL
     Indication: HYPERTENSION
     Dosage: UNK
     Route: 065
  2. SUMATRIPTAN. [Concomitant]
     Active Substance: SUMATRIPTAN
     Indication: MIGRAINE
     Dosage: 0.5 DF, UNK
     Route: 065

REACTIONS (3)
  - Implant site haemorrhage [Recovered/Resolved]
  - Rash macular [Not Recovered/Not Resolved]
  - Fatigue [Recovered/Resolved]
